FAERS Safety Report 7654259 (Version 10)
Quarter: 2013Q3

REPORT INFORMATION
  Report Type: Report from Study
  Country: US (occurrence: US)
  Receive Date: 20101102
  Receipt Date: 20130712
  Transmission Date: 20140515
  Serious: Yes (Hospitalization, Other)
  Sender: FDA-Public Use
  Company Number: US-BRISTOL-MYERS SQUIBB COMPANY-15312275

PATIENT
  Age: 71 Year
  Sex: Female

DRUGS (7)
  1. SAXAGLIPTIN [Suspect]
     Indication: TYPE 2 DIABETES MELLITUS
     Dosage: LAST DOSE 22SEP2010
     Route: 048
     Dates: start: 20100819, end: 20100922
  2. GLUCOPHAGE [Suspect]
     Indication: TYPE 2 DIABETES MELLITUS
     Dosage: 2000 MG
     Route: 048
  3. NOVOLOG [Suspect]
     Indication: TYPE 2 DIABETES MELLITUS
  4. LANTUS [Suspect]
     Indication: TYPE 2 DIABETES MELLITUS
  5. DIABETA [Suspect]
     Indication: TYPE 2 DIABETES MELLITUS
  6. ASPIRIN [Concomitant]
     Dosage: 1DF={100MG
     Dates: start: 20100818
  7. HYPERTENSION MEDICATION [Concomitant]

REACTIONS (6)
  - Cholelithiasis [Recovered/Resolved with Sequelae]
  - Abdominal pain [Recovered/Resolved with Sequelae]
  - Hypoglycaemia [Recovered/Resolved]
  - Abdominal pain upper [Recovered/Resolved with Sequelae]
  - Vomiting [Recovered/Resolved with Sequelae]
  - Nausea [Recovered/Resolved with Sequelae]
